FAERS Safety Report 16027989 (Version 3)
Quarter: 2019Q4

REPORT INFORMATION
  Report Type: Spontaneous
  Country: JP (occurrence: JP)
  Receive Date: 20190304
  Receipt Date: 20191106
  Transmission Date: 20200122
  Serious: Yes (Other)
  Sender: FDA-Public Use
  Company Number: JP-BRISTOL-MYERS SQUIBB COMPANY-BMS-2019-019514

PATIENT
  Age: 45 Year
  Sex: Male

DRUGS (3)
  1. SPRYCEL [Suspect]
     Active Substance: DASATINIB
     Indication: CHRONIC MYELOID LEUKAEMIA
     Dosage: 100 MG, QD
     Route: 048
  2. FUROSEMIDE. [Concomitant]
     Active Substance: FUROSEMIDE
     Indication: PRODUCT USED FOR UNKNOWN INDICATION
     Route: 048
  3. SPIRONOLACTONE. [Concomitant]
     Active Substance: SPIRONOLACTONE
     Indication: PRODUCT USED FOR UNKNOWN INDICATION
     Route: 048

REACTIONS (2)
  - Tuberculous pleurisy [Recovering/Resolving]
  - Photosensitivity reaction [Recovering/Resolving]
